FAERS Safety Report 5279963-0 (Version None)
Quarter: 2007Q1

REPORT INFORMATION
  Report Type: 
  Country: None (occurrence: None)
  Receive Date: 20070327
  Receipt Date: 20070327
  Transmission Date: 20070707
  Serious: Yes (Hospitalization)
  Sender: FDA-Public Use
  Company Number: None

PATIENT
  Age: 56 Year
  Sex: Male
  Weight: 75.2971 kg

DRUGS (3)
  1. ENOXAPARIN SODIUM [Suspect]
     Indication: SEPSIS
     Dosage: 40 MG DAILY SQ
     Route: 058
     Dates: start: 20060223, end: 20070305
  2. ENOXAPARIN SODIUM [Suspect]
     Indication: THROMBOSIS PROPHYLAXIS
     Dosage: 40 MG DAILY SQ
     Route: 058
     Dates: start: 20060223, end: 20070305
  3. VANCOMYCIN [Suspect]
     Indication: SEPSIS
     Dosage: 1000 MG Q12HRS

REACTIONS (2)
  - HEPARIN-INDUCED THROMBOCYTOPENIA [None]
  - THROMBOCYTOPENIA [None]
